FAERS Safety Report 5025827-7 (Version None)
Quarter: 2006Q2

REPORT INFORMATION
  Report Type: 
  Country: None (occurrence: None)
  Receive Date: 20060427
  Receipt Date: 20050902
  Transmission Date: 20061013
  Serious: Yes (Other)
  Sender: FDA-Public Use
  Company Number: 2005110219

PATIENT
  Age: 75 Year
  Sex: Female

DRUGS (4)
  1. ZITHROMAX [Suspect]
     Indication: LOBAR PNEUMONIA
     Dosage: 500 MG (500 MG, 1 IN 1 D), INTRAVENOUS
     Route: 042
     Dates: start: 20041111, end: 20041117
  2. CELEBREX [Concomitant]
  3. CEFTRIAXONE [Concomitant]
  4. NEBULIZED ALBUTEROL (SALBUTAMOL) [Concomitant]

REACTIONS (1)
  - DEAFNESS [None]
